FAERS Safety Report 9993343 (Version 2)
Quarter: 2014Q1

REPORT INFORMATION
  Report Type: Spontaneous
  Country: ES (occurrence: ES)
  Receive Date: 20140310
  Receipt Date: 20140317
  Transmission Date: 20141002
  Serious: Yes (Hospitalization, Other)
  Sender: FDA-Public Use
  Company Number: ES-BAYER-2014-031229

PATIENT
  Age: 73 Year
  Sex: Female
  Weight: 105 kg

DRUGS (10)
  1. ADIRO 100 [Suspect]
     Indication: ATRIAL FIBRILLATION
     Dosage: 100 MG, QD
     Route: 048
     Dates: start: 2005, end: 20140208
  2. SINTROM [Interacting]
     Indication: ATRIAL FIBRILLATION
     Dosage: UNK
     Route: 048
     Dates: start: 2005
  3. OMEPRAZOL [Interacting]
     Indication: PROPHYLAXIS
     Dosage: 40 MG, UNK
     Route: 048
     Dates: start: 2005
  4. ROSUVASTATIN [Interacting]
     Dosage: 10 MG, UNK
     Route: 048
     Dates: start: 2005
  5. MULTAQ [Interacting]
     Indication: ATRIAL FIBRILLATION
     Dosage: UNK
     Route: 048
     Dates: start: 2005
  6. EPLERENONE [Concomitant]
     Indication: CARDIAC FAILURE CONGESTIVE
     Dosage: 50 MG, UNK
     Route: 048
  7. CO VALSARTAN [HYDROCHLOROTHIAZIDE,VALSARTAN] [Concomitant]
     Indication: CARDIAC FAILURE CONGESTIVE
     Dosage: 80MG/12.5MG
     Route: 048
  8. FUROSEMIDA [Concomitant]
     Indication: CARDIAC FAILURE CONGESTIVE
     Dosage: 40 MG, UNK
     Route: 048
  9. ALOPURINOL [Concomitant]
     Dosage: 100 MG, UNK
     Route: 048
  10. INDACATEROL [Concomitant]

REACTIONS (3)
  - Renal failure acute [Recovered/Resolved]
  - Anaemia [Recovered/Resolved]
  - Melaena [Recovered/Resolved]
